FAERS Safety Report 4455903-9 (Version None)
Quarter: 2004Q3

REPORT INFORMATION
  Report Type: 
  Country: None (occurrence: None)
  Receive Date: 20040830
  Receipt Date: 20040615
  Transmission Date: 20050211
  Serious: No
  Sender: FDA-Public Use
  Company Number: 207229

PATIENT
  Age: 68 Year
  Sex: Male

DRUGS (1)
  1. XOLAIR [Suspect]
     Indication: ASTHMA
     Dosage: 375 MG,Q2W, SUBCUTANEOUS
     Route: 058
     Dates: start: 20031201

REACTIONS (1)
  - RASH [None]
